FAERS Safety Report 25309860 (Version 1)
Quarter: 2025Q2

REPORT INFORMATION
  Report Type: Spontaneous
  Country: PK (occurrence: None)
  Receive Date: 20250514
  Receipt Date: 20250514
  Transmission Date: 20250716
  Serious: Yes (Life-Threatening, Hospitalization)
  Sender: ENCUBE ETHICALS
  Company Number: PK-Encube-001811

PATIENT
  Age: 37 Year
  Sex: Male

DRUGS (1)
  1. DICLOFENAC SODIUM [Suspect]
     Active Substance: DICLOFENAC SODIUM
     Indication: Musculoskeletal pain
     Route: 030

REACTIONS (4)
  - Off label use [Unknown]
  - Gas gangrene [Recovering/Resolving]
  - Compartment syndrome [Recovering/Resolving]
  - Sepsis [Recovering/Resolving]
